FAERS Safety Report 8597619-3 (Version None)
Quarter: 2012Q3

REPORT INFORMATION
  Report Type: 
  Country: None (occurrence: None)
  Receive Date: 20120802
  Receipt Date: 20120711
  Transmission Date: 20120928
  Serious: Yes (Hospitalization)
  Sender: FDA-Public Use
  Company Number: 2012-377

PATIENT
  Age: 77 Year
  Sex: Male
  Weight: 102.3 kg

DRUGS (20)
  1. CLONIDINE [Concomitant]
  2. VITAMIN B12 [Concomitant]
  3. BETHANECHOL CLORIDE (BETHANECHOL CHLORIDE) [Concomitant]
  4. ALBUTEROL [Concomitant]
  5. AMBIEN [Concomitant]
  6. PERCOCET [Concomitant]
  7. PRIALT [Suspect]
     Indication: INTERVERTEBRAL DISC DEGENERATION
     Dosage: 0.087 UG, ONCE/HOUR, INTRATHECAL, 0.09 UG, ONCE/HOUR, INTRATHECAL, 0.06 UG, ONCE/HOUR, INTRATHECAL
     Route: 037
     Dates: start: 20120702, end: 20120711
  8. PRIALT [Suspect]
     Indication: INTERVERTEBRAL DISC DEGENERATION
     Dosage: 0.087 UG, ONCE/HOUR, INTRATHECAL, 0.09 UG, ONCE/HOUR, INTRATHECAL, 0.06 UG, ONCE/HOUR, INTRATHECAL
     Route: 037
     Dates: start: 20120711, end: 20120718
  9. PRIALT [Suspect]
     Indication: INTERVERTEBRAL DISC DEGENERATION
     Dosage: 0.087 UG, ONCE/HOUR, INTRATHECAL, 0.09 UG, ONCE/HOUR, INTRATHECAL, 0.06 UG, ONCE/HOUR, INTRATHECAL
     Route: 037
     Dates: start: 20120620, end: 20120702
  10. ASPIRIN CHILDREN (ACETYLSALICYLIC ACID) [Concomitant]
  11. FERROUS GLUCONATE (FERROUS GLUCONATE) [Concomitant]
  12. COREG [Concomitant]
  13. FLUNISOLIDE ACETATE (FLUNISOLIDE ACETATE) [Concomitant]
  14. SPIRIVA [Concomitant]
  15. VITAMIN B6 [Concomitant]
  16. METFFORMIN HYDROCHLORIDE [Concomitant]
  17. ADVAIR HFA [Concomitant]
  18. DOXAZOSIN MESYLATE [Concomitant]
  19. NEURONTIN [Concomitant]
  20. OMEPRAZOLE [Concomitant]

REACTIONS (3)
  - DEVICE RELATED INFECTION [None]
  - LEFT VENTRICULAR HYPERTROPHY [None]
  - CARDIAC FAILURE CONGESTIVE [None]
